FAERS Safety Report 19015061 (Version 2)
Quarter: 2021Q1

REPORT INFORMATION
  Report Type: Spontaneous
  Country: JP (occurrence: JP)
  Receive Date: 20210317
  Receipt Date: 20210319
  Transmission Date: 20210420
  Serious: Yes (Other)
  Sender: FDA-Public Use
  Company Number: JP-BRISTOL-MYERS SQUIBB COMPANY-BMS-2021-023209

PATIENT
  Age: 80 Year
  Sex: Female

DRUGS (5)
  1. HEPARIN [Concomitant]
     Active Substance: HEPARIN SODIUM
     Dosage: 10000 UNITS OF HEPARIN SODIUM 38 ML, 3 ML/H
     Route: 065
     Dates: start: 2020
  2. ELIQUIS [Suspect]
     Active Substance: APIXABAN
     Indication: PULMONARY THROMBOSIS
     Dosage: UNK
     Route: 048
     Dates: start: 2020, end: 2020
  3. HEPARIN [Concomitant]
     Active Substance: HEPARIN SODIUM
     Indication: PULMONARY THROMBOSIS
     Dosage: UNK
     Route: 065
     Dates: start: 2020, end: 2020
  4. FUROSEMIDE. [Concomitant]
     Active Substance: FUROSEMIDE
     Indication: PRODUCT USED FOR UNKNOWN INDICATION
     Dosage: 40 MILLIGRAM
     Route: 065
     Dates: start: 2020
  5. ELIQUIS [Suspect]
     Active Substance: APIXABAN
     Dosage: 10 MILLIGRAM
     Route: 048
     Dates: start: 2020

REACTIONS (6)
  - Interstitial lung disease [Unknown]
  - Drug ineffective [Unknown]
  - Oedema peripheral [Unknown]
  - Haematuria [Unknown]
  - Sputum decreased [Unknown]
  - Haematochezia [Unknown]

NARRATIVE: CASE EVENT DATE: 2020
